FAERS Safety Report 6272180-7 (Version None)
Quarter: 2009Q3

REPORT INFORMATION
  Report Type: 
  Country: None (occurrence: None)
  Receive Date: 20090717
  Receipt Date: 20090713
  Transmission Date: 20100115
  Serious: Yes (Death, Life-Threatening, Other)
  Sender: FDA-Public Use
  Company Number: JP-JNJFOC-20060601897

PATIENT
  Sex: Female
  Weight: 53 kg

DRUGS (9)
  1. LEUSTATIN [Suspect]
     Route: 041
  2. LEUSTATIN [Suspect]
     Route: 041
  3. LEUSTATIN [Suspect]
     Indication: B-CELL LYMPHOMA
     Route: 041
  4. NOVANTRONE [Concomitant]
     Route: 042
  5. NOVANTRONE [Concomitant]
     Route: 042
  6. NOVANTRONE [Concomitant]
     Indication: B-CELL LYMPHOMA
     Route: 042
  7. NEUTROGIN [Concomitant]
     Route: 058
  8. CONCENTRATED RED CELLS [Concomitant]
     Route: 041
  9. CONCENTRATED RED CELLS [Concomitant]
     Route: 041

REACTIONS (5)
  - B-CELL LYMPHOMA [None]
  - HAEMOGLOBIN DECREASED [None]
  - LYMPHOCYTE COUNT DECREASED [None]
  - TUMOUR HAEMORRHAGE [None]
  - WHITE BLOOD CELL COUNT DECREASED [None]
